FAERS Safety Report 8301992-0 (Version None)
Quarter: 2012Q2

REPORT INFORMATION
  Report Type: 
  Country: None (occurrence: None)
  Receive Date: 20120420
  Receipt Date: 20120409
  Transmission Date: 20120825
  Serious: Yes (Hospitalization, Other)
  Sender: FDA-Public Use
  Company Number: US-ROCHE-788273

PATIENT
  Sex: Male
  Weight: 79.45 kg

DRUGS (1)
  1. ACCUTANE [Suspect]
     Indication: ACNE
     Route: 065
     Dates: start: 19830101, end: 19840101

REACTIONS (8)
  - CROHN'S DISEASE [None]
  - INTESTINAL FISTULA [None]
  - INFLAMMATORY BOWEL DISEASE [None]
  - DRUG HYPERSENSITIVITY [None]
  - STRESS [None]
  - DEPRESSION [None]
  - INTESTINAL HAEMORRHAGE [None]
  - INTESTINAL OBSTRUCTION [None]
